FAERS Safety Report 5578651-0 (Version None)
Quarter: 2008Q1

REPORT INFORMATION
  Report Type: 
  Country: None (occurrence: None)
  Receive Date: 20080102
  Receipt Date: 20071221
  Transmission Date: 20080703
  Serious: Yes (Death, Other)
  Sender: FDA-Public Use
  Company Number: US-JNJFOC-20071204678

PATIENT
  Age: 37 Year
  Sex: Male

DRUGS (3)
  1. PREZISTA [Suspect]
     Indication: HIV INFECTION
     Route: 048
  2. RITONAVIR [Concomitant]
     Indication: HIV INFECTION
     Route: 065
  3. EPZICOM [Concomitant]
     Indication: HIV INFECTION
     Route: 065

REACTIONS (1)
  - IMMUNE RECONSTITUTION SYNDROME [None]
